FAERS Safety Report 6206367-6 (Version None)
Quarter: 2009Q2

REPORT INFORMATION
  Report Type: 
  Country: None (occurrence: None)
  Receive Date: 20090528
  Receipt Date: 20090521
  Transmission Date: 20091009
  Serious: Yes (Other)
  Sender: FDA-Public Use
  Company Number: US-ASTRAZENECA-2009UW13065

PATIENT
  Age: 42 Year
  Sex: Male

DRUGS (5)
  1. CRESTOR [Suspect]
     Indication: BLOOD CHOLESTEROL INCREASED
     Route: 048
  2. BETASERON [Suspect]
     Indication: RELAPSING-REMITTING MULTIPLE SCLEROSIS
     Dosage: DOSE GRADUALLY TITRATED UP FROM 2 MIU / 4 MIU / 6 MIU
     Route: 058
     Dates: start: 20090407
  3. KEPPRA [Concomitant]
  4. ATIVAN [Concomitant]
     Indication: CONVULSION
  5. LAMICTAL [Concomitant]

REACTIONS (5)
  - CONTUSION [None]
  - CONVULSION [None]
  - FALL [None]
  - LACERATION [None]
  - PAIN IN EXTREMITY [None]
